FAERS Safety Report 9285370 (Version 2)
Quarter: 2013Q2

REPORT INFORMATION
  Report Type: Spontaneous
  Country: GB (occurrence: None)
  Receive Date: 20130506
  Receipt Date: 20130514
  Transmission Date: 20140414
  Serious: Yes (Other)
  Sender: FDA-Public Use
  Company Number: GER/UKI/13/0029357

PATIENT
  Age: 80 Year
  Sex: Female

DRUGS (6)
  1. AMLODIPINE [Suspect]
     Indication: BLOOD PRESSURE
     Route: 048
  2. LEVOTHYROXINE (LEVOTHYROXINE) [Concomitant]
  3. LISINOPRIL (LISINOPRIL) [Concomitant]
  4. ROSUVASTATIN (ROSUVASTATIN) [Concomitant]
  5. SOTALOL [Concomitant]
  6. WARFARIN (WARFARIN) [Concomitant]

REACTIONS (5)
  - Weight increased [None]
  - Hallucination [None]
  - Nausea [None]
  - Pain [None]
  - Pyrexia [None]
